FAERS Safety Report 4813041-7 (Version None)
Quarter: 2005Q4

REPORT INFORMATION
  Report Type: 
  Country: None (occurrence: None)
  Receive Date: 20051028
  Receipt Date: 20051019
  Transmission Date: 20060501
  Serious: Yes (Hospitalization)
  Sender: FDA-Public Use
  Company Number: US-JNJFOC-20051004156

PATIENT
  Sex: Male
  Weight: 112.49 kg

DRUGS (2)
  1. REMICADE [Suspect]
     Indication: CROHN'S DISEASE
     Route: 042
  2. ALBUTEROL [Concomitant]

REACTIONS (1)
  - GASTROINTESTINAL CARCINOMA [None]
